FAERS Safety Report 5373476-3 (Version None)
Quarter: 2007Q2

REPORT INFORMATION
  Report Type: 
  Country: None (occurrence: None)
  Receive Date: 20070626
  Receipt Date: 20070626
  Transmission Date: 20071010
  Serious: Yes (Hospitalization)
  Sender: FDA-Public Use
  Company Number: None

PATIENT
  Age: 72 Year
  Sex: Male
  Weight: 88 kg

DRUGS (1)
  1. LOTENSIN [Suspect]
     Indication: BLOOD PRESSURE
     Dosage: 40MG DAILY PO
     Route: 048

REACTIONS (4)
  - ANGIOEDEMA [None]
  - CARDIAC FAILURE CONGESTIVE [None]
  - MYOCARDIAL INFARCTION [None]
  - PNEUMONIA [None]
